FAERS Safety Report 5831578-9 (Version None)
Quarter: 2008Q3

REPORT INFORMATION
  Report Type: 
  Country: None (occurrence: None)
  Receive Date: 20080801
  Receipt Date: 20080723
  Transmission Date: 20090109
  Serious: No
  Sender: FDA-Public Use
  Company Number: US-ABBOTT-08P-163-0458439-00

PATIENT
  Sex: Female
  Weight: 67.646 kg

DRUGS (6)
  1. NIASPAN [Suspect]
     Indication: BLOOD CHOLESTEROL INCREASED
     Route: 048
     Dates: start: 20080513, end: 20080619
  2. MILRINONE LACTATE [Concomitant]
     Indication: DRUG USE FOR UNKNOWN INDICATION
     Route: 048
  3. ATENOLOL [Concomitant]
     Indication: DRUG USE FOR UNKNOWN INDICATION
     Route: 048
  4. SERTRALINE [Concomitant]
     Indication: DEPRESSION
     Route: 048
  5. BUSPIRONE HYDROCHLORIDE [Concomitant]
     Indication: DRUG USE FOR UNKNOWN INDICATION
     Route: 048
  6. ACETYLSALICYLIC ACID SRT [Concomitant]
     Indication: PREMEDICATION
     Route: 048

REACTIONS (5)
  - DERMATITIS CONTACT [None]
  - DISCOMFORT [None]
  - PRURITUS [None]
  - RASH ERYTHEMATOUS [None]
  - SWELLING [None]
